FAERS Safety Report 12109364 (Version 1)
Quarter: 2016Q1

REPORT INFORMATION
  Report Type: Spontaneous
  Country: US (occurrence: None)
  Receive Date: 20160222
  Receipt Date: 20160222
  Transmission Date: 20160526
  Serious: Yes (Hospitalization)
  Sender: FDA-Public Use
  Company Number: None

PATIENT
  Age: 79 Year
  Sex: Female

DRUGS (6)
  1. LANSOPRAZOLE. [Concomitant]
     Active Substance: LANSOPRAZOLE
  2. HYDRALAZINE [Suspect]
     Active Substance: HYDRALAZINE HYDROCHLORIDE
     Indication: HYPERTENSION
     Route: 048
     Dates: end: 20151104
  3. FUROSEMIDE. [Concomitant]
     Active Substance: FUROSEMIDE
  4. CALCIUM + VITAMIN D [Concomitant]
     Active Substance: CALCIUM\VITAMIN D
  5. INSULIN REG/NPH [Concomitant]
  6. AMLODIPINE [Concomitant]
     Active Substance: AMLODIPINE BESYLATE

REACTIONS (8)
  - Pyrexia [None]
  - Anaemia [None]
  - Haemoptysis [None]
  - Hypertension [None]
  - Acute kidney injury [None]
  - Haemodialysis [None]
  - Pulmonary alveolar haemorrhage [None]
  - Vasculitis [None]

NARRATIVE: CASE EVENT DATE: 20151104
